FAERS Safety Report 25744999 (Version 1)
Quarter: 2025Q3

REPORT INFORMATION
  Report Type: Spontaneous
  Country: GB (occurrence: GB)
  Receive Date: 20250901
  Receipt Date: 20250901
  Transmission Date: 20251020
  Serious: Yes (Hospitalization, Other)
  Sender: AUROBINDO
  Company Number: GB-MHRA-MIDB-214a3479-56bf-471f-99ce-fd2da2e3fea6

PATIENT
  Age: 33 Year
  Sex: Male

DRUGS (1)
  1. IBUPROFEN [Suspect]
     Active Substance: IBUPROFEN
     Indication: Headache
     Route: 065

REACTIONS (5)
  - Haematemesis [Unknown]
  - Haemorrhage [Unknown]
  - Ulcer [Unknown]
  - Cold sweat [Unknown]
  - Malaise [Unknown]
